FAERS Safety Report 18618309 (Version 1)
Quarter: 2020Q4

REPORT INFORMATION
  Report Type: Report from Study
  Country: NL (occurrence: NL)
  Receive Date: 20201215
  Receipt Date: 20201215
  Transmission Date: 20210114
  Serious: Yes (Life-Threatening, Hospitalization)
  Sender: FDA-Public Use
  Company Number: NL-TEVA-2020-NL-1857497

PATIENT
  Age: 80 Year
  Sex: Female

DRUGS (2)
  1. LEFLUNOMIDE TABLET  20MG / BRAND NAME NOT SPECIFIED [Suspect]
     Active Substance: LEFLUNOMIDE
     Indication: RHEUMATOID ARTHRITIS
     Dosage: 20 MILLIGRAM DAILY; 20MG, 1X/D
     Dates: start: 20100309, end: 20201102
  2. ETANERCEPT INJECTIE / BRAND NAME NOT SPECIFIED [Concomitant]
     Dosage: 50MG, 1X/W
     Dates: start: 20190312, end: 20201102

REACTIONS (3)
  - Renal cell carcinoma [Not Recovered/Not Resolved]
  - Pulmonary embolism [Not Recovered/Not Resolved]
  - Cystitis [Not Recovered/Not Resolved]

NARRATIVE: CASE EVENT DATE: 20201031
